FAERS Safety Report 6178462-1 (Version None)
Quarter: 2009Q2

REPORT INFORMATION
  Report Type: 
  Country: None (occurrence: None)
  Receive Date: 20090504
  Receipt Date: 20080527
  Transmission Date: 20091009
  Serious: No
  Sender: FDA-Public Use
  Company Number: US-ALEXION-A200800124

PATIENT

DRUGS (15)
  1. SOLIRIS [Suspect]
     Indication: PAROXYSMAL NOCTURNAL HAEMOGLOBINURIA
     Dosage: 600 MG, SINGLE
     Route: 042
     Dates: start: 20080404, end: 20080404
  2. SOLIRIS [Suspect]
     Dosage: 600 MG, SINGLE
     Route: 042
     Dates: start: 20080410, end: 20080410
  3. SOLIRIS [Suspect]
     Dosage: 600 MG, SINGLE
     Route: 042
     Dates: start: 20080417, end: 20080417
  4. SOLIRIS [Suspect]
     Dosage: 600 MG, SINGLE
     Route: 042
     Dates: start: 20080425, end: 20080425
  5. SOLIRIS [Suspect]
     Dosage: 900 MG, SINGLE
     Route: 042
     Dates: start: 20080501, end: 20080501
  6. SOLIRIS [Suspect]
     Dosage: 900 MG, SINGLE
     Route: 042
     Dates: start: 20080515, end: 20080515
  7. LABETALOL HCL [Concomitant]
     Indication: HYPERTENSION
     Dosage: UNK, QD
  8. PREDNISONE [Concomitant]
     Dosage: 5 MG, QD
  9. MULTIVITAMIN                       /00831701/ [Concomitant]
  10. VITAMIN C                          /00008001/ [Concomitant]
  11. VITAMIN A [Concomitant]
  12. IRON [Concomitant]
     Dosage: UNK, QD
     Route: 048
  13. FOLIC ACID [Concomitant]
     Dosage: UNK, QD
     Route: 048
  14. MAGNESIUM SULFATE [Concomitant]
     Dosage: UNK, QD
     Route: 048
  15. EXCEDRIN (MIGRAINE) [Concomitant]
     Indication: MIGRAINE
     Dosage: UNK, PRN
     Route: 048

REACTIONS (1)
  - ARTHRITIS [None]
